FAERS Safety Report 21239660 (Version 1)
Quarter: 2022Q3

REPORT INFORMATION
  Report Type: Spontaneous
  Country: US (occurrence: US)
  Receive Date: 20220822
  Receipt Date: 20220822
  Transmission Date: 20221026
  Serious: No
  Sender: FDA-Public Use
  Company Number: US-BRISTOL-MYERS SQUIBB COMPANY-BMS-2022-032045

PATIENT
  Age: 88 Year
  Sex: Female

DRUGS (1)
  1. THALIDOMIDE [Suspect]
     Active Substance: THALIDOMIDE
     Indication: Product used for unknown indication
     Dosage: 1 DF : 1 CAPSULE
     Route: 048
     Dates: start: 20131223

REACTIONS (2)
  - Abdominal discomfort [Unknown]
  - Adverse event [Unknown]
